FAERS Safety Report 7685452-6 (Version None)
Quarter: 2011Q3

REPORT INFORMATION
  Report Type: 
  Country: None (occurrence: None)
  Receive Date: 20110816
  Receipt Date: 20100928
  Transmission Date: 20111222
  Serious: No
  Sender: FDA-Public Use
  Company Number: US-BRISTOL-MYERS SQUIBB COMPANY-15307416

PATIENT
  Age: 79 Year
  Sex: Male

DRUGS (3)
  1. CIPROFLOXACIN [Concomitant]
  2. GLUCOVANCE [Suspect]
     Dosage: 1DF:2.5/500 MG
  3. GLYBURIDE [Suspect]

REACTIONS (2)
  - EXPIRED DRUG ADMINISTERED [None]
  - BLOOD GLUCOSE FLUCTUATION [None]
